FAERS Safety Report 5500655-4 (Version None)
Quarter: 2007Q4

REPORT INFORMATION
  Report Type: 
  Country: None (occurrence: None)
  Receive Date: 20071029
  Receipt Date: 20071025
  Transmission Date: 20080405
  Serious: Yes (Other)
  Sender: FDA-Public Use
  Company Number: A0689691A

PATIENT
  Age: 54 Year
  Sex: Female

DRUGS (1)
  1. ALLI [Suspect]
     Dates: start: 20071008, end: 20071020

REACTIONS (10)
  - ABDOMINAL PAIN UPPER [None]
  - FEAR [None]
  - FREQUENT BOWEL MOVEMENTS [None]
  - GASTROENTERITIS VIRAL [None]
  - HOT FLUSH [None]
  - HUNGER [None]
  - MALAISE [None]
  - NAUSEA [None]
  - RECTAL DISCHARGE [None]
  - STOMACH DISCOMFORT [None]
